FAERS Safety Report 8594717 (Version 2)
Quarter: 2012Q4

REPORT INFORMATION
  Report Type: 
  Country: US (occurrence: US)
  Receive Date: 20120604
  Receipt Date: 20121025
  Transmission Date: 20130627
  Serious: Yes (Hospitalization, Other)
  Sender: FDA-Public Use
  Company Number: US-ROCHE-1027668

PATIENT
  Sex: Female
  Weight: 56.75 kg

DRUGS (2)
  1. ACCUTANE [Suspect]
     Indication: HIDRADENITIS
     Route: 048
     Dates: start: 199906, end: 199912
  2. ACCUTANE [Suspect]
     Route: 048
     Dates: start: 200002, end: 200008

REACTIONS (7)
  - Depression [Unknown]
  - Suicidal ideation [Unknown]
  - Crohn^s disease [Unknown]
  - Mental disorder [Unknown]
  - Inflammatory bowel disease [Unknown]
  - Irritable bowel syndrome [Unknown]
  - Dry skin [Unknown]
